FAERS Safety Report 5029740-0 (Version None)
Quarter: 2006Q2

REPORT INFORMATION
  Report Type: 
  Country: None (occurrence: None)
  Receive Date: 20060620
  Receipt Date: 20060610
  Transmission Date: 20061013
  Serious: Yes (Hospitalization)
  Sender: FDA-Public Use
  Company Number: 2006UW12532

PATIENT
  Age: 52 Year
  Sex: Male

DRUGS (1)
  1. PRILOSEC [Suspect]
     Route: 048

REACTIONS (3)
  - BURNING SENSATION [None]
  - DRUG INEFFECTIVE [None]
  - DYSPNOEA [None]
